FAERS Safety Report 15483067 (Version 1)
Quarter: 2018Q4

REPORT INFORMATION
  Report Type: Spontaneous
  Country: US (occurrence: US)
  Receive Date: 20181003
  Receipt Date: 20181003
  Transmission Date: 20190205
  Serious: No
  Sender: FDA-Public Use
  Company Number: None

PATIENT
  Age: 71 Year
  Sex: Female
  Weight: 97.7 kg

DRUGS (1)
  1. REMICADE [Suspect]
     Active Substance: INFLIXIMAB
     Indication: PSORIATIC ARTHROPATHY
     Dosage: 293 MG EVERY 8 WEEKS INTRAVENOUS DRIP
     Route: 041
     Dates: start: 20180503, end: 20180813

REACTIONS (4)
  - Pruritus [None]
  - Feeling hot [None]
  - Infusion related reaction [None]
  - Chills [None]

NARRATIVE: CASE EVENT DATE: 20180813
